FAERS Safety Report 10063701 (Version 2)
Quarter: 2014Q3

REPORT INFORMATION
  Report Type: Report from Study
  Country: US (occurrence: US)
  Receive Date: 20140407
  Receipt Date: 20140711
  Transmission Date: 20150326
  Serious: Yes (Other)
  Sender: FDA-Public Use
  Company Number: US-ABBVIE-14P-163-1218503-00

PATIENT
  Age: 42 Year
  Sex: Female
  Weight: 178 kg

DRUGS (11)
  1. LUPRON DEPOT [Suspect]
     Active Substance: LEUPROLIDE ACETATE
     Dates: start: 201309
  2. PERCOCET [Concomitant]
     Active Substance: ACETAMINOPHEN\OXYCODONE HYDROCHLORIDE
     Indication: PRODUCT USED FOR UNKNOWN INDICATION
  3. LUPRON DEPOT [Suspect]
     Active Substance: LEUPROLIDE ACETATE
     Indication: ENDOMETRIOSIS
  4. IBUPROFEN. [Concomitant]
     Active Substance: IBUPROFEN
     Indication: PRODUCT USED FOR UNKNOWN INDICATION
  5. LUPRON DEPOT [Suspect]
     Active Substance: LEUPROLIDE ACETATE
  6. SIMVASTATIN. [Concomitant]
     Active Substance: SIMVASTATIN
     Indication: PRODUCT USED FOR UNKNOWN INDICATION
  7. LUPRON DEPOT [Suspect]
     Active Substance: LEUPROLIDE ACETATE
     Dates: start: 201302
  8. LUPRON DEPOT [Suspect]
     Active Substance: LEUPROLIDE ACETATE
     Indication: ENDOMETRIOSIS
  9. SIMVASTATIN. [Concomitant]
     Active Substance: SIMVASTATIN
     Indication: PRODUCT USED FOR UNKNOWN INDICATION
  10. IBUPROFEN. [Concomitant]
     Active Substance: IBUPROFEN
     Indication: PRODUCT USED FOR UNKNOWN INDICATION
  11. HYDROCHOLOROT [Concomitant]
     Indication: PRODUCT USED FOR UNKNOWN INDICATION

REACTIONS (19)
  - Oophorectomy [Unknown]
  - Adenoma benign [Unknown]
  - Menopause [Unknown]
  - Oedema genital [Unknown]
  - Ovarian cyst [Unknown]
  - Hot flush [Unknown]
  - Hysterectomy [Unknown]
  - Endometriosis [Unknown]
  - Oedema [Unknown]
  - Pelvic adhesions [Unknown]
  - Pelvic mass [Unknown]
  - Ovarian adhesion [Unknown]
  - Ovarian haemorrhage [Unknown]
  - Weight increased [Unknown]
  - Abdominal adhesions [Unknown]
  - Menorrhagia [Unknown]
  - Vaginal odour [Unknown]
  - Uterine leiomyoma [Unknown]
  - Adrenal mass [Unknown]

NARRATIVE: CASE EVENT DATE: 20090428
